FAERS Safety Report 25346801 (Version 1)
Quarter: 2025Q2

REPORT INFORMATION
  Report Type: Spontaneous
  Country: US (occurrence: US)
  Receive Date: 20250522
  Receipt Date: 20250522
  Transmission Date: 20250716
  Serious: Yes (Other)
  Sender: BAYER HEALTHCARE PHARMACEUTICALS INC.
  Company Number: US-BAYER-2025A067280

PATIENT
  Age: 32 Year
  Sex: Female

DRUGS (3)
  1. SKYLA [Suspect]
     Active Substance: LEVONORGESTREL
     Indication: Heavy menstrual bleeding
     Dosage: 14?G/DAY
     Route: 015
     Dates: start: 202406
  2. SKYLA [Suspect]
     Active Substance: LEVONORGESTREL
     Indication: Dysmenorrhoea
  3. SKYLA [Suspect]
     Active Substance: LEVONORGESTREL
     Indication: Intrauterine contraception

REACTIONS (2)
  - Surgery [None]
  - Device dislocation [None]
